FAERS Safety Report 6522179-8 (Version None)
Quarter: 2009Q4

REPORT INFORMATION
  Report Type: 
  Country: None (occurrence: None)
  Receive Date: 20091229
  Receipt Date: 20091229
  Transmission Date: 20100525
  Serious: Yes (Hospitalization)
  Sender: FDA-Public Use
  Company Number: None

PATIENT
  Age: 45 Year
  Sex: Female
  Weight: 78.5 kg

DRUGS (9)
  1. RALTEGRAVIR [Suspect]
     Indication: SUICIDE ATTEMPT
     Dates: start: 20091003, end: 20091004
  2. TRUVADA [Suspect]
     Indication: SUICIDE ATTEMPT
     Dates: start: 20091003, end: 20091004
  3. RITONAVIR [Suspect]
     Indication: SUICIDE ATTEMPT
     Dates: start: 20091003, end: 20091004
  4. DARUNAVIR [Suspect]
     Indication: SUICIDE ATTEMPT
     Dates: start: 20091003, end: 20091004
  5. TRAZODONE HCL [Concomitant]
  6. BACTRIM [Concomitant]
  7. ALBUTEROL [Concomitant]
  8. ADVAIR DISKUS 100/50 [Concomitant]
  9. SINGULAIR [Concomitant]

REACTIONS (2)
  - DRUG ABUSE [None]
  - MULTIPLE DRUG OVERDOSE [None]
